FAERS Safety Report 5483258-X (Version None)
Quarter: 2007Q4

REPORT INFORMATION
  Report Type: 
  Country: None (occurrence: None)
  Receive Date: 20071009
  Receipt Date: 20071002
  Transmission Date: 20080405
  Serious: Yes (Life-Threatening, Hospitalization)
  Sender: FDA-Public Use
  Company Number: 2007SP014711

PATIENT
  Age: 26 Year
  Sex: Female

DRUGS (4)
  1. TEMOZOLOMIDE [Suspect]
     Indication: MALIGNANT GLIOMA
     Dosage: 600 MG/M2; QD; PO
     Route: 048
     Dates: start: 20070705, end: 20070709
  2. TEMOZOLOMIDE [Suspect]
     Indication: RECURRENT CANCER
     Dosage: 600 MG/M2; QD; PO
     Route: 048
     Dates: start: 20070705, end: 20070709
  3. INEXIUM [Concomitant]
  4. MEDROL [Concomitant]

REACTIONS (20)
  - APRAXIA [None]
  - ASTROCYTOMA MALIGNANT [None]
  - COMA [None]
  - CONFUSIONAL STATE [None]
  - CSF GLUCOSE DECREASED [None]
  - DIARRHOEA [None]
  - DYSGEUSIA [None]
  - ENCEPHALITIS [None]
  - EPILEPSY [None]
  - FALL [None]
  - FEBRILE BONE MARROW APLASIA [None]
  - FUNGAL INFECTION [None]
  - HEMIPLEGIA [None]
  - HYPOKALAEMIA [None]
  - IMMUNOSUPPRESSION [None]
  - NEUROLOGICAL SYMPTOM [None]
  - OEDEMA [None]
  - PNEUMOTHORAX [None]
  - RECURRENT CANCER [None]
  - THROMBOCYTOPENIC PURPURA [None]
